FAERS Safety Report 24590858 (Version 1)
Quarter: 2024Q4

REPORT INFORMATION
  Report Type: Spontaneous
  Country: GB (occurrence: GB)
  Receive Date: 20241107
  Receipt Date: 20241107
  Transmission Date: 20250115
  Serious: Yes (Hospitalization, Other)
  Sender: DR REDDYS
  Company Number: None

PATIENT
  Age: 81 Year
  Sex: Male

DRUGS (14)
  1. APIXABAN [Suspect]
     Active Substance: APIXABAN
     Indication: Product used for unknown indication
     Dosage: 2.5 MG TABLETS ONE TO BE TAKEN TWICE A DAY - NOT PRESCRIBED, INTERACTION WITH POSACONAZOLE
  2. POSACONAZOLE [Suspect]
     Active Substance: POSACONAZOLE
     Indication: Product used for unknown indication
  3. FERROUS SULFATE [Concomitant]
     Active Substance: FERROUS SULFATE
     Indication: Product used for unknown indication
     Dosage: 200 MG TABLETS ONE TO BE TAKEN EACH DAY AT LUNCHTIME
  4. NICORANDIL [Concomitant]
     Active Substance: NICORANDIL
     Indication: Product used for unknown indication
     Dosage: 20 MG TABLETS ONE TO BE TAKEN TWICE A DAY
  5. LOSARTAN [Concomitant]
     Active Substance: LOSARTAN
     Indication: Product used for unknown indication
     Dosage: 25 MG TABLETS ONE TO BE TAKEN EACH DAY
  6. LINAGLIPTIN [Concomitant]
     Active Substance: LINAGLIPTIN
     Indication: Product used for unknown indication
     Dosage: 5 MG TABLETS ONE TO BE TAKEN EACH DAY
  7. GLICLAZIDE [Concomitant]
     Active Substance: GLICLAZIDE
     Indication: Product used for unknown indication
     Dosage: 40 MG TABLETS ONE TO BE TAKEN WITH EVENING MEAL
  8. TAMSULOSIN [Concomitant]
     Active Substance: TAMSULOSIN
     Indication: Product used for unknown indication
     Dosage: 400 MICROGRAM MODIFIED-RELEASE CAPSULES ONE TO BE TAKEN EACH DAY
  9. BISOPROLOL [Concomitant]
     Active Substance: BISOPROLOL\BISOPROLOL FUMARATE
     Indication: Product used for unknown indication
     Dosage: 1.25 MG TABLETS ONE TO BE TAKEN EACH DAY - INCREASED TO 2.5MG OD
     Dates: end: 20241023
  10. ATORVASTATIN [Concomitant]
     Active Substance: ATORVASTATIN
     Indication: Product used for unknown indication
     Dosage: 20 MG TABLETS ONE TO BE TAKEN EACH DAY - NOT PRESCRIBED, INTERACTION WITH POSACONAZOLE
  11. AMITRIPTYLINE [Concomitant]
     Active Substance: AMITRIPTYLINE
     Indication: Product used for unknown indication
     Dosage: 10 MG TABLETS TWO TO BE TAKEN AT NIGHT
  12. Xismox XL [Concomitant]
     Indication: Product used for unknown indication
     Dosage: 60MG TABLETS TWO TO BE TAKEN EACH MORNING
  13. SENNA [Concomitant]
     Active Substance: SENNA LEAF\SENNOSIDES\SENNOSIDES A AND B
     Indication: Product used for unknown indication
     Dosage: 7.5 MG TABLETS ONE OR TWO TO BE TAKEN AT NIGHT
  14. LANSOPRAZOLE [Concomitant]
     Active Substance: LANSOPRAZOLE
     Indication: Product used for unknown indication
     Dosage: 15 MG GASTRO-RESISTANT CAPSULES ONE TO BE TAKEN EACH MORNING

REACTIONS (1)
  - Haemoptysis [Recovered/Resolved]
